FAERS Safety Report 16080304 (Version 2)
Quarter: 2019Q2

REPORT INFORMATION
  Report Type: Spontaneous
  Country: US (occurrence: US)
  Receive Date: 20190315
  Receipt Date: 20190606
  Transmission Date: 20190711
  Serious: No
  Sender: FDA-Public Use
  Company Number: US-PTC THERAPEUTICS, INC.-US-2018PTC001257

PATIENT
  Age: 10 Year
  Sex: Male

DRUGS (2)
  1. EMFLAZA [Suspect]
     Active Substance: DEFLAZACORT
     Indication: DUCHENNE MUSCULAR DYSTROPHY
     Dosage: 18 MG, QD
     Route: 048
     Dates: start: 20180813, end: 20181204
  2. EMFLAZA [Suspect]
     Active Substance: DEFLAZACORT
     Dosage: 54 MG, ON SATURDAY AND ON SUNDAY
     Route: 048
     Dates: start: 20181205

REACTIONS (5)
  - Off label use [Unknown]
  - Speech disorder [Unknown]
  - Peripheral swelling [Unknown]
  - Weight increased [Unknown]
  - Cushingoid [Unknown]

NARRATIVE: CASE EVENT DATE: 20181204
